FAERS Safety Report 18736098 (Version 8)
Quarter: 2024Q4

REPORT INFORMATION
  Report Type: Report from Study
  Country: US (occurrence: US)
  Receive Date: 20210113
  Receipt Date: 20241224
  Transmission Date: 20250115
  Serious: Yes (Other)
  Sender: TAKEDA
  Company Number: US-TAKEDA-US202034221

PATIENT
  Age: 23 Year
  Sex: Male

DRUGS (4)
  1. HUMAN IMMUNOGLOBULIN G [Suspect]
     Active Substance: HUMAN IMMUNOGLOBULIN G
     Indication: Primary immunodeficiency syndrome
     Dosage: 16 GRAM, 2/WEEK
     Dates: start: 20180801
  2. HUMAN IMMUNOGLOBULIN G [Suspect]
     Active Substance: HUMAN IMMUNOGLOBULIN G
     Indication: Immunodeficiency common variable
     Dosage: UNK
  3. HUMAN IMMUNOGLOBULIN G [Suspect]
     Active Substance: HUMAN IMMUNOGLOBULIN G
     Dosage: 16 GRAM, Q2WEEKS
  4. HYDROCORTISONE [Concomitant]
     Active Substance: HYDROCORTISONE
     Indication: Adrenal insufficiency
     Dosage: 180 MILLIGRAM, QD
     Dates: end: 2019

REACTIONS (25)
  - Skin cancer [Unknown]
  - Pneumonia [Recovered/Resolved]
  - Pneumothorax [Recovered/Resolved]
  - Illness [Recovered/Resolved]
  - COVID-19 [Recovered/Resolved]
  - Tooth fracture [Unknown]
  - Atelectasis [Recovered/Resolved]
  - Limb discomfort [Recovered/Resolved]
  - Connective tissue inflammation [Recovered/Resolved]
  - Depressed mood [Recovered/Resolved]
  - Infection [Recovered/Resolved]
  - Bedridden [Recovered/Resolved]
  - Insurance issue [Recovered/Resolved with Sequelae]
  - Infusion site irritation [Recovered/Resolved]
  - Nasopharyngitis [Recovered/Resolved]
  - Ulnocarpal abutment syndrome [Unknown]
  - Infusion site scar [Unknown]
  - Cyst [Unknown]
  - Inappropriate schedule of product administration [Recovered/Resolved]
  - Influenza [Recovered/Resolved]
  - Nasal congestion [Recovered/Resolved]
  - Infusion site erythema [Recovered/Resolved]
  - Pain [Recovered/Resolved]
  - Infusion site swelling [Recovered/Resolved]
  - Infusion site pruritus [Recovered/Resolved]

NARRATIVE: CASE EVENT DATE: 20230801
